FAERS Safety Report 10198294 (Version 2)
Quarter: 2014Q2

REPORT INFORMATION
  Report Type: Spontaneous
  Country: US (occurrence: US)
  Receive Date: 20140527
  Receipt Date: 20140625
  Transmission Date: 20141212
  Serious: Yes (Hospitalization, Other)
  Sender: FDA-Public Use
  Company Number: US-BAYER-2014-078795

PATIENT
  Age: 22 Year
  Sex: Female
  Weight: 65.76 kg

DRUGS (1)
  1. MIRENA [Suspect]
     Indication: CONTRACEPTION
     Dosage: 20 MCG/24HR, CONT
     Route: 015
     Dates: start: 20080905, end: 20120104

REACTIONS (9)
  - Uterine perforation [None]
  - Genital haemorrhage [None]
  - Post procedural discomfort [None]
  - Pregnancy with contraceptive device [None]
  - Drug ineffective [None]
  - Medical device pain [None]
  - Device dislocation [None]
  - Injury [None]
  - Pain [None]
